FAERS Safety Report 6884609-1 (Version None)
Quarter: 2010Q3

REPORT INFORMATION
  Report Type: 
  Country: None (occurrence: None)
  Receive Date: 20100729
  Receipt Date: 20070712
  Transmission Date: 20110219
  Serious: No
  Sender: FDA-Public Use
  Company Number: US-PFIZER INC-2007058148

PATIENT
  Sex: Female

DRUGS (2)
  1. CELEBREX [Suspect]
     Indication: ARTHRITIS
     Dosage: 1-2 DOSES PER DAY
     Dates: start: 20000701, end: 20020701
  2. BEXTRA [Suspect]
     Dosage: 1-2 DOSES PER DAY
     Dates: start: 20020801, end: 20050101

REACTIONS (1)
  - CARDIAC DISORDER [None]
